FAERS Safety Report 4914420-X (Version None)
Quarter: 2006Q1

REPORT INFORMATION
  Report Type: 
  Country: None (occurrence: None)
  Receive Date: 20060113
  Receipt Date: 20051113
  Transmission Date: 20060701
  Serious: No
  Sender: FDA-Public Use
  Company Number: 2005SP003965

PATIENT
  Age: 37 Year
  Sex: Female
  Weight: 55.7924 kg

DRUGS (3)
  1. LUNESTA [Suspect]
     Indication: INITIAL INSOMNIA
     Dosage: SEE IMAGE
     Route: 048
     Dates: start: 20051101, end: 20051101
  2. LUNESTA [Suspect]
     Indication: INITIAL INSOMNIA
     Dosage: SEE IMAGE
     Route: 048
     Dates: start: 20051112, end: 20051101
  3. PAXIL [Concomitant]

REACTIONS (2)
  - DRUG INEFFECTIVE [None]
  - INITIAL INSOMNIA [None]
